FAERS Safety Report 5503934-X (Version None)
Quarter: 2007Q4

REPORT INFORMATION
  Report Type: 
  Country: None (occurrence: None)
  Receive Date: 20071030
  Receipt Date: 20071030
  Transmission Date: 20080405
  Serious: Yes (Hospitalization)
  Sender: FDA-Public Use
  Company Number: None

PATIENT
  Sex: Female
  Weight: 96.5 kg

DRUGS (3)
  1. CYTARABINE [Suspect]
     Dosage: 1400 MG
  2. DAUNORUBICIN HCL [Suspect]
     Dosage: 180 MG
  3. LEUKINE [Suspect]
     Dosage: 5500 MG

REACTIONS (1)
  - SMALL INTESTINAL OBSTRUCTION [None]
